FAERS Safety Report 8914981 (Version 1)
Quarter: 2012Q4

REPORT INFORMATION
  Report Type: 
  Country: US (occurrence: US)
  Receive Date: 20121116
  Receipt Date: 20121116
  Transmission Date: 20130627
  Serious: Yes (Hospitalization)
  Sender: FDA-Public Use
  Company Number: US-ASTRAZENECA-2012SE84882

PATIENT
  Age: 55 Year
  Sex: Female
  Weight: 64.4 kg

DRUGS (8)
  1. LISINOPRIL [Suspect]
     Route: 048
     Dates: start: 2007
  2. SEROQUEL XR [Suspect]
     Indication: BIPOLAR DISORDER
     Route: 048
     Dates: start: 2007
  3. SEROQUEL XR [Suspect]
     Indication: BIPOLAR DISORDER
     Route: 048
  4. KLONOPIN [Concomitant]
     Indication: ANXIETY
     Route: 048
     Dates: start: 2010
  5. NORCO [Concomitant]
     Indication: PAIN
     Route: 048
     Dates: start: 2002
  6. XANAX [Concomitant]
     Indication: ANXIETY
     Dates: end: 2010
  7. CITALOPRAM [Concomitant]
     Route: 048
  8. AMLODIPINE VESYLATE [Concomitant]
     Indication: CHRONIC OBSTRUCTIVE PULMONARY DISEASE
     Route: 048
     Dates: start: 201210

REACTIONS (4)
  - Chronic obstructive pulmonary disease [Unknown]
  - Rheumatoid arthritis [Unknown]
  - Dysphonia [Unknown]
  - Aphonia [Unknown]
